FAERS Safety Report 24559523 (Version 1)
Quarter: 2024Q4

REPORT INFORMATION
  Report Type: Report from Study
  Country: ZA (occurrence: ZA)
  Receive Date: 20241029
  Receipt Date: 20241029
  Transmission Date: 20250115
  Serious: Yes (Other)
  Sender: ABBVIE
  Company Number: ZA-ABBOTT-2024A-1390580

PATIENT
  Age: 54 Year
  Sex: Male

DRUGS (27)
  1. FENOFIBRATE [Suspect]
     Active Substance: FENOFIBRATE
     Indication: Blood cholesterol abnormal
     Dosage: 200 MG TAKE ONE CAPSULE DAILY
     Route: 048
  2. MELATONIN [Concomitant]
     Active Substance: MELATONIN
     Indication: Sleep disorder
     Dosage: 2 MG TAKE ONE TABLET IN THE MORNING
     Route: 048
  3. TIOTROPIUM BROMIDE [Concomitant]
     Active Substance: TIOTROPIUM BROMIDE
     Indication: Chronic obstructive pulmonary disease
     Dosage: 18 MCG INHALE POWDER OF ONE CAPSULE
     Route: 055
  4. ALPRAZOLAM [Concomitant]
     Active Substance: ALPRAZOLAM
     Indication: Anxiety
     Dosage: 1 MG TAKE ONE TABLET TWO TIMES A DAY
     Route: 048
  5. ADCO DOL [Concomitant]
     Indication: Product used for unknown indication
     Dosage: TIME INTERVAL: AS NECESSARY: AS DIRECTED
     Route: 048
  6. FLUTICASONE FUROATE\VILANTEROL TRIFENATATE [Concomitant]
     Active Substance: FLUTICASONE FUROATE\VILANTEROL TRIFENATATE
     Indication: Asthma
     Dosage: 184/22 MCG TAKE ONE PUFF IN THE MORNING?30 DOSE
     Route: 055
  7. PHENERGAN [Concomitant]
     Active Substance: PROMETHAZINE HYDROCHLORIDE
     Indication: Product used for unknown indication
     Dosage: DAILY
     Route: 048
  8. VOMIDON [Concomitant]
     Indication: Nausea
     Dosage: 10 MG TAKE ONE TABLET THREE TIMES A DAY
     Route: 048
  9. AZITHROMYCIN [Concomitant]
     Active Substance: AZITHROMYCIN
     Indication: Product used for unknown indication
     Dosage: 500 MG TAKE ONE TABLET ONCE DAILY
     Route: 048
  10. THEOPHYLLINE [Concomitant]
     Active Substance: THEOPHYLLINE
     Indication: Bronchospasm
     Dosage: 200 MG TAKE ONE TABLET TWO TIMES A DAY?ANH 200 KIARA
     Route: 048
  11. AMITRIPTYLINE [Concomitant]
     Active Substance: AMITRIPTYLINE
     Indication: Depression
     Dosage: 25 MG TAKE TWO TABLETS AT NIGHT
     Route: 048
  12. TRAZODONE HYDROCHLORIDE [Concomitant]
     Active Substance: TRAZODONE HYDROCHLORIDE
     Indication: Depression
     Dosage: 50 MG TAKE FOUR CAPSULE(S) EVENING
     Route: 048
  13. TRAZODONE HYDROCHLORIDE [Concomitant]
     Active Substance: TRAZODONE HYDROCHLORIDE
     Indication: Depression
     Dosage: 100 MG TAKE TWO CAPSULES AT NIGHT
     Route: 048
  14. SYMADIN [Concomitant]
     Indication: Parkinson^s disease
     Dosage: 100 MG TAKE ONE CAPSULE IN THE MORNING
     Route: 048
  15. NEUROBION [Concomitant]
     Active Substance: CYANOCOBALAMIN\PYRIDOXINE\THIAMINE
     Indication: Product used for unknown indication
     Dosage: TAKE ONE TABLET IN THE MORNING
     Route: 048
  16. Serdep [Concomitant]
     Indication: Mental disorder
     Dosage: 100 MG TAKE ONE TABLET IN THE MORNING
     Route: 048
  17. Pantocid [Concomitant]
     Indication: Ulcer
     Dosage: 20 MG TAKE ONE TABLET IN THE MORNING
     Route: 048
  18. COVERAM [Concomitant]
     Active Substance: AMLODIPINE\PERINDOPRIL
     Indication: Hypertension
     Dosage: 10/10 MG TAKE ONE TABLET IN THE MORNING
     Route: 048
  19. Cyfil [Concomitant]
     Indication: Erectile dysfunction
     Dosage: 5 MG TAKE ONE TABLET IN THE MORNING
     Route: 048
  20. ACETAMINOPHEN\CODEINE\IBUPROFEN [Concomitant]
     Active Substance: ACETAMINOPHEN\CODEINE\IBUPROFEN
     Indication: Product used for unknown indication
     Dosage: USE AS PER PACKAGE INSERT
     Route: 048
  21. MEMANTINE HYDROCHLORIDE [Concomitant]
     Active Substance: MEMANTINE HYDROCHLORIDE
     Indication: Dementia Alzheimer^s type
     Dosage: 10 MG TAKE ONE TABLET IN THE MORNING
     Route: 048
  22. SINEMET CR [Concomitant]
     Active Substance: CARBIDOPA\LEVODOPA
     Indication: Parkinson^s disease
     Dosage: 50/200 MG TAKE ONE TABLET THREE TIMES A DAY
     Route: 048
  23. SINEMET CR [Concomitant]
     Active Substance: CARBIDOPA\LEVODOPA
     Indication: Parkinson^s disease
     Dosage: 25/100 MG TAKE TWO TABLETS THREE TIMES A DAY
     Route: 048
  24. ALBUTEROL SULFATE [Concomitant]
     Active Substance: ALBUTEROL SULFATE
     Indication: Bronchospasm
     Dosage: 100 MCG TAKE TWO PUFFS THREE TIMS A DAY
     Route: 055
  25. DORMONOCT [Concomitant]
     Active Substance: LOPRAZOLAM
     Indication: Sleep disorder
     Dosage: 2 MG TAKE ONE TABLET AT NIGHT
     Route: 048
  26. Uromax [Concomitant]
     Indication: Prostatomegaly
     Dosage: 0.4 MG TAKE ONE CAPSULE IN THE MORNING
     Route: 048
  27. CELEBREX [Concomitant]
     Active Substance: CELECOXIB
     Indication: Pain
     Dosage: 200 MG TAKE ONE CAPSULE IN THE MORNING
     Route: 048

REACTIONS (1)
  - Parkinson^s disease [Unknown]
